FAERS Safety Report 7894709-5 (Version None)
Quarter: 2011Q4

REPORT INFORMATION
  Report Type: 
  Country: None (occurrence: None)
  Receive Date: 20111106
  Receipt Date: 20110818
  Transmission Date: 20120403
  Serious: Yes (Hospitalization)
  Sender: FDA-Public Use
  Company Number: US-AMGEN-USASP2011024182

PATIENT
  Age: 44 Year
  Sex: Female

DRUGS (1)
  1. ENBREL [Suspect]
     Indication: PSORIASIS
     Dosage: 50 MG, QWK
     Dates: start: 20060801

REACTIONS (4)
  - THERAPEUTIC RESPONSE DECREASED [None]
  - PSORIASIS [None]
  - PRESYNCOPE [None]
  - INFLAMMATORY BOWEL DISEASE [None]
